FAERS Safety Report 7654139-8 (Version None)
Quarter: 2011Q3

REPORT INFORMATION
  Report Type: 
  Country: None (occurrence: None)
  Receive Date: 20110803
  Receipt Date: 20110727
  Transmission Date: 20111222
  Serious: Yes (Hospitalization, Other)
  Sender: FDA-Public Use
  Company Number: PHHY2011BR68387

PATIENT
  Age: 61 Year
  Sex: Female

DRUGS (1)
  1. VOLTAREN [Suspect]
     Indication: PAIN
     Dosage: 1 SUPPOSITORY AT NIGHT
     Route: 054

REACTIONS (2)
  - ARRHYTHMIA [None]
  - CARDIAC DISORDER [None]
